FAERS Safety Report 24986131 (Version 1)
Quarter: 2025Q1

REPORT INFORMATION
  Report Type: Spontaneous
  Country: US (occurrence: None)
  Receive Date: 20250218
  Receipt Date: 20250218
  Transmission Date: 20250409
  Serious: Yes (Disabling)
  Sender: FDA-CTU
  Company Number: None

PATIENT
  Age: 72 Year
  Sex: Male
  Weight: 95.85 kg

DRUGS (9)
  1. DUPIXENT [Suspect]
     Active Substance: DUPILUMAB
     Indication: Nasal polyps
     Dosage: OTHER QUANTITY : 1 SINGLE DOSE PEN;?OTHER FREQUENCY : 2 WEEK INTERVALS;?
     Route: 058
     Dates: start: 20240731, end: 20241121
  2. WARFARIN [Concomitant]
     Active Substance: WARFARIN
  3. TRIAMTERENE [Concomitant]
     Active Substance: TRIAMTERENE
  4. HYDROCHLOROTHIAZIDE [Concomitant]
     Active Substance: HYDROCHLOROTHIAZIDE
  5. PRAVASTATIN [Concomitant]
     Active Substance: PRAVASTATIN
  6. VITAMIN D [Concomitant]
     Active Substance: VITAMIN D NOS
  7. VITAMIN B12 [Concomitant]
     Active Substance: CYANOCOBALAMIN
  8. CHONDROITIN SULFATE (BOVINE)\GLUCOSAMINE HYDROCHLORIDE [Concomitant]
     Active Substance: CHONDROITIN SULFATE (BOVINE)\GLUCOSAMINE HYDROCHLORIDE
  9. DIETARY SUPPLEMENT [Concomitant]
     Active Substance: DIETARY SUPPLEMENT

REACTIONS (6)
  - Musculoskeletal stiffness [None]
  - Arthralgia [None]
  - Arthralgia [None]
  - Joint stiffness [None]
  - Anaemia [None]
  - C-reactive protein increased [None]

NARRATIVE: CASE EVENT DATE: 20241121
